FAERS Safety Report 9565309 (Version 1)
Quarter: 2013Q3

REPORT INFORMATION
  Report Type: Report from Study
  Country: MX (occurrence: MX)
  Receive Date: 20130930
  Receipt Date: 20130930
  Transmission Date: 20140515
  Serious: Yes (Death)
  Sender: FDA-Public Use
  Company Number: MX-INCYTE CORPORATION-2013IN002219

PATIENT
  Sex: Male

DRUGS (1)
  1. INC424 [Suspect]
     Dosage: UNK UNK, UNK
     Route: 065

REACTIONS (1)
  - Leukostasis syndrome [Fatal]
